FAERS Safety Report 8391088-4 (Version None)
Quarter: 2012Q2

REPORT INFORMATION
  Report Type: 
  Country: None (occurrence: None)
  Receive Date: 20120529
  Receipt Date: 20120515
  Transmission Date: 20120825
  Serious: Yes (Other)
  Sender: FDA-Public Use
  Company Number: FR-CELGENEUS-056-21880-12051865

PATIENT
  Sex: Male
  Weight: 90 kg

DRUGS (2)
  1. NEORECORMON [Suspect]
     Route: 058
     Dates: start: 20101011
  2. REVLIMID [Suspect]
     Route: 048
     Dates: start: 20101011

REACTIONS (2)
  - FAECALITH [None]
  - CONSTIPATION [None]
